FAERS Safety Report 9010205 (Version 1)
Quarter: 2013Q1

REPORT INFORMATION
  Report Type: Spontaneous
  Country: US (occurrence: US)
  Receive Date: 20130110
  Receipt Date: 20130110
  Transmission Date: 20140127
  Serious: Yes (Other)
  Sender: FDA-Public Use
  Company Number: US-009507513-1012USA00828

PATIENT
  Sex: 0

DRUGS (2)
  1. SINGULAIR [Suspect]
     Indication: ASTHMA
     Dosage: 5 MG, QD
     Route: 048
     Dates: start: 20090202, end: 20100326
  2. SINGULAIR [Suspect]
     Indication: HYPERSENSITIVITY

REACTIONS (3)
  - Anger [Recovered/Resolved]
  - Frustration [Recovered/Resolved]
  - Depression [Recovered/Resolved]
